FAERS Safety Report 6134941-4 (Version None)
Quarter: 2009Q1

REPORT INFORMATION
  Report Type: 
  Country: None (occurrence: None)
  Receive Date: 20090327
  Receipt Date: 20080909
  Transmission Date: 20090719
  Serious: Yes (Death, Hospitalization)
  Sender: FDA-Public Use
  Company Number: JP-ASTRAZENECA-2003AP01156

PATIENT
  Age: 25167 Day
  Sex: Female

DRUGS (21)
  1. IRESSA [Suspect]
     Indication: LUNG SQUAMOUS CELL CARCINOMA STAGE UNSPECIFIED
     Route: 048
     Dates: start: 20020914, end: 20021003
  2. IRESSA [Suspect]
     Route: 048
     Dates: start: 20021122, end: 20021124
  3. RADIATION THERAPY [Concomitant]
     Dosage: DOSE OF 70 GY INTERRUPTED FROM 18 TO 21 FEBRUARY 2000
     Dates: start: 20000208, end: 20000331
  4. RADIATION THERAPY [Concomitant]
     Dosage: 48 GY ADMINISTERED
     Dates: start: 20020514, end: 20020614
  5. CARBOPLATIN [Concomitant]
     Dosage: 2 COURSES ADMINISTERED
     Dates: start: 20000207, end: 20000310
  6. ETOPOSIDE [Concomitant]
     Dosage: 2 COURSES ADMINISTERED
     Dates: start: 20000207, end: 20000310
  7. GEMCITABINE [Concomitant]
     Dosage: 1 COURSE
     Dates: start: 20011001
  8. VINORELBINE [Concomitant]
     Dosage: 1 COURSE ADMINISTERED
     Dates: start: 20011001
  9. GASTER [Concomitant]
     Route: 048
     Dates: start: 20020601, end: 20021130
  10. NAIXAN [Concomitant]
     Route: 048
     Dates: start: 20020601, end: 20021209
  11. HALCION [Concomitant]
     Route: 048
     Dates: start: 20020601, end: 20021209
  12. PREDONINE [Concomitant]
     Route: 048
     Dates: start: 20020801, end: 20021209
  13. PAXIL [Concomitant]
     Route: 048
     Dates: start: 20020815, end: 20021209
  14. MUCOSOLVAN [Concomitant]
     Route: 048
     Dates: start: 20021107, end: 20021209
  15. CODEINE PHOSPHATE [Concomitant]
     Route: 048
     Dates: start: 20021121, end: 20021209
  16. PENTAZOCINE LACTATE [Concomitant]
     Route: 048
     Dates: start: 20021129, end: 20021204
  17. PURSENNID [Concomitant]
     Route: 048
     Dates: start: 20021129, end: 20021208
  18. MAGNESIUM OXIDE [Concomitant]
     Route: 048
     Dates: start: 20021129, end: 20021209
  19. MS CONTIN [Concomitant]
     Route: 048
     Dates: start: 20021204, end: 20021208
  20. MS CONTIN [Concomitant]
     Route: 048
     Dates: start: 20021208, end: 20021209
  21. NEO-MINOPHAGEN C [Concomitant]
     Route: 042

REACTIONS (3)
  - ANOREXIA [None]
  - LUNG DISORDER [None]
  - PNEUMONIA [None]
